FAERS Safety Report 24131516 (Version 1)
Quarter: 2024Q3

REPORT INFORMATION
  Report Type: Spontaneous
  Country: BR (occurrence: BR)
  Receive Date: 20240724
  Receipt Date: 20240724
  Transmission Date: 20241017
  Serious: Yes (Other)
  Sender: CELLTRION
  Company Number: BR-CELLTRION INC.-2024BR017456

PATIENT

DRUGS (6)
  1. INFLIXIMAB [Suspect]
     Active Substance: INFLIXIMAB
     Indication: Rheumatoid arthritis
     Dosage: UNK
     Route: 042
     Dates: start: 20240510
  2. INFLIXIMAB [Suspect]
     Active Substance: INFLIXIMAB
     Dosage: 2 AMPOULES EVERY 60 DAYS
     Route: 042
     Dates: start: 20240710
  3. LOSARTAN [Concomitant]
     Active Substance: LOSARTAN
     Indication: Hypertension
     Dosage: 50 MG, 1 PILL A DAY (START DATE: 30 YEARS AGO)
     Route: 048
  4. LACIDIPINE [Concomitant]
     Active Substance: LACIDIPINE
     Indication: Hypertension
     Dosage: 5 MG, 1 PILL A DAY (START DATE: 30 YEARS AGO)
     Route: 048
  5. HYDROCHLOROTHIAZIDE [Concomitant]
     Active Substance: HYDROCHLOROTHIAZIDE
     Indication: Hypertension
     Dosage: 25 MG, 1 PILL A DAY (START DATE: 30 YEARS AGO)
     Route: 048
  6. METHOTREXATE [Concomitant]
     Active Substance: METHOTREXATE
     Indication: Rheumatoid arthritis
     Dosage: 20 MG, 1 PILL A WEEK (START DATE: 20 YEARS AGO)
     Route: 048

REACTIONS (4)
  - Rheumatoid arthritis [Not Recovered/Not Resolved]
  - Influenza [Recovering/Resolving]
  - Intentional dose omission [Unknown]
  - Intentional product use issue [Unknown]

NARRATIVE: CASE EVENT DATE: 20240707
